FAERS Safety Report 4971827-2 (Version None)
Quarter: 2006Q2

REPORT INFORMATION
  Report Type: 
  Country: None (occurrence: None)
  Receive Date: 20060407
  Receipt Date: 20060329
  Transmission Date: 20061013
  Serious: Yes (Other)
  Sender: FDA-Public Use
  Company Number: 2006044713

PATIENT
  Age: 62 Year
  Sex: Female
  Weight: 77.1115 kg

DRUGS (6)
  1. LYRICA [Suspect]
     Indication: NEUROPATHY
     Dosage: 150 MG (75 MG, 2 IN 1 D)
     Dates: start: 20051201, end: 20060329
  2. ENBREL [Concomitant]
  3. HUMALOG [Concomitant]
  4. LANTUS [Concomitant]
  5. ALTACE [Concomitant]
  6. QUININE SULFATE [Concomitant]

REACTIONS (3)
  - CEREBROVASCULAR ACCIDENT [None]
  - EYELID PTOSIS [None]
  - SINUSITIS [None]
